FAERS Safety Report 15143448 (Version 1)
Quarter: 2018Q3

REPORT INFORMATION
  Report Type: Spontaneous
  Country: US (occurrence: US)
  Receive Date: 20180618
  Receipt Date: 20180618
  Transmission Date: 20181010
  Serious: Yes (Hospitalization)
  Sender: FDA-Public Use
  Company Number: None

PATIENT
  Age: 60 Year
  Sex: Male

DRUGS (1)
  1. IBUPROFEN. [Suspect]
     Active Substance: IBUPROFEN
     Indication: PAIN
     Route: 048
     Dates: start: 20180430, end: 20180530

REACTIONS (4)
  - Gastric ulcer [None]
  - Impaired healing [None]
  - Alcohol abuse [None]
  - Gastric haemorrhage [None]

NARRATIVE: CASE EVENT DATE: 20180604
